FAERS Safety Report 10056250 (Version 3)
Quarter: 2014Q2

REPORT INFORMATION
  Report Type: Spontaneous
  Country: JP (occurrence: JP)
  Receive Date: 20140403
  Receipt Date: 20140604
  Transmission Date: 20141212
  Serious: Yes (Death, Life-Threatening)
  Sender: FDA-Public Use
  Company Number: JP-PFIZER INC-2014037478

PATIENT
  Age: 86 Year
  Sex: Male
  Weight: 47 kg

DRUGS (4)
  1. ZYVOX [Suspect]
     Indication: WOUND INFECTION STAPHYLOCOCCAL
     Dosage: 600 MG, 2X/DAY
     Route: 041
     Dates: start: 20140205, end: 20140208
  2. HEPARIN [Concomitant]
     Indication: COAGULOPATHY
     Dosage: 500 IU/H, UNK
     Route: 041
     Dates: start: 20140204, end: 20140205
  3. RECOMODULIN [Concomitant]
     Indication: COAGULOPATHY
     Dosage: 19200 IU, 1X/DAY
     Route: 041
     Dates: start: 20140206
  4. SOLU-CORTEF [Concomitant]
     Indication: ADRENAL INSUFFICIENCY
     Dosage: 250 MG, 4X/DAY
     Route: 042
     Dates: start: 20140206

REACTIONS (2)
  - Intestinal ischaemia [Fatal]
  - Hyperlactacidaemia [Recovered/Resolved with Sequelae]
